FAERS Safety Report 16828484 (Version 1)
Quarter: 2019Q3

REPORT INFORMATION
  Report Type: Spontaneous
  Country: US (occurrence: US)
  Receive Date: 20190919
  Receipt Date: 20190919
  Transmission Date: 20191005
  Serious: No
  Sender: FDA-Public Use
  Company Number: US-SA-2019SA257638

PATIENT
  Age: 65 Year
  Sex: Female
  Weight: 47.62 kg

DRUGS (9)
  1. STERILE WATER [Concomitant]
     Active Substance: WATER
     Dosage: 1 EACH, UNK
     Route: 042
     Dates: start: 20190801
  2. ACETAMINOPHEN. [Concomitant]
     Active Substance: ACETAMINOPHEN
     Indication: PREMEDICATION
     Dosage: 650 MG, UNK
     Route: 048
     Dates: start: 20190801
  3. CEREZYME [Suspect]
     Active Substance: IMIGLUCERASE
     Indication: GAUCHER^S DISEASE
     Dosage: 2800 UNITS, QOW
     Route: 041
     Dates: start: 20040317
  4. SODIUM CHLORIDE. [Concomitant]
     Active Substance: SODIUM CHLORIDE
     Dosage: 0.9 %, UNK
     Route: 042
     Dates: start: 20190801
  5. VITAMIN B [Concomitant]
     Active Substance: VITAMIN B
     Dosage: 1 TAB, QD
     Route: 048
     Dates: start: 20190802
  6. NORMAL SALINE [Concomitant]
     Active Substance: SODIUM CHLORIDE
     Dosage: 0.9 %, UNK
     Route: 042
     Dates: start: 20190801
  7. VITAMIN D3 [Concomitant]
     Active Substance: CHOLECALCIFEROL
     Dosage: 1 CAP, QD
     Route: 048
     Dates: start: 20151209
  8. PROLIA [Concomitant]
     Active Substance: DENOSUMAB
     Dosage: 60 MG, Q6M
     Route: 058
     Dates: start: 20170320
  9. EPINEPHRINE. [Concomitant]
     Active Substance: EPINEPHRINE
     Indication: ANAPHYLACTIC REACTION
     Dosage: 0.3 MG, QD
     Route: 030
     Dates: start: 20190801

REACTIONS (1)
  - Decreased appetite [Unknown]

NARRATIVE: CASE EVENT DATE: 20190905
